FAERS Safety Report 4751344-5 (Version None)
Quarter: 2005Q3

REPORT INFORMATION
  Report Type: 
  Country: None (occurrence: None)
  Receive Date: 20050823
  Receipt Date: 20050823
  Transmission Date: 20060218
  Serious: Yes (Hospitalization)
  Sender: FDA-Public Use
  Company Number: None

PATIENT
  Age: 61 Year
  Sex: Male
  Weight: 69.8539 kg

DRUGS (2)
  1. VIRAMUNE [Suspect]
     Indication: HIV INFECTION
     Dosage: 1 BID PO
     Route: 048
     Dates: start: 19990730, end: 20050601
  2. ZIAGEN [Suspect]
     Indication: HIV INFECTION
     Dosage: 1 BID PO
     Route: 048
     Dates: start: 20030624, end: 20050601

REACTIONS (9)
  - ABDOMINAL TENDERNESS [None]
  - ASTHENIA [None]
  - GALLBLADDER DISORDER [None]
  - HEPATIC NECROSIS [None]
  - HEPATITIS [None]
  - JAUNDICE [None]
  - LIVER FUNCTION TEST ABNORMAL [None]
  - MALAISE [None]
  - NAUSEA [None]
